FAERS Safety Report 9168239 (Version 1)
Quarter: 2013Q1

REPORT INFORMATION
  Report Type: Report from Study
  Country: CA (occurrence: CA)
  Receive Date: 20130318
  Receipt Date: 20130318
  Transmission Date: 20140127
  Serious: Yes (Other)
  Sender: FDA-Public Use
  Company Number: CA-JNJFOC-20130305044

PATIENT
  Sex: Male
  Weight: 53.07 kg

DRUGS (2)
  1. REMICADE [Suspect]
     Indication: CROHN^S DISEASE
     Dosage: FIRST DOSE
     Route: 042
     Dates: start: 20130214
  2. CORTISONE [Concomitant]
     Route: 065

REACTIONS (2)
  - Cyst [Unknown]
  - Diarrhoea [Unknown]
